FAERS Safety Report 5839374-3 (Version None)
Quarter: 2008Q3

REPORT INFORMATION
  Report Type: 
  Country: None (occurrence: None)
  Receive Date: 20080806
  Receipt Date: 20080730
  Transmission Date: 20090109
  Serious: Yes (Hospitalization)
  Sender: FDA-Public Use
  Company Number: 2007SP002100

PATIENT
  Age: 65 Year
  Sex: Female

DRUGS (2)
  1. PEG-INTRON [Suspect]
     Indication: CHRONIC HEPATITIS
     Dosage: QW; SC
     Route: 058
     Dates: start: 20060901, end: 20070111
  2. REBETOL [Suspect]
     Indication: CHRONIC HEPATITIS
     Dosage: QD; PO
     Route: 048
     Dates: start: 20060901, end: 20070111

REACTIONS (4)
  - ERYTHEMA MULTIFORME [None]
  - GENERALISED ERYTHEMA [None]
  - INJECTION SITE ERYTHEMA [None]
  - INJECTION SITE PRURITUS [None]
